FAERS Safety Report 24352858 (Version 1)
Quarter: 2024Q3

REPORT INFORMATION
  Report Type: Spontaneous
  Country: US (occurrence: US)
  Receive Date: 20240923
  Receipt Date: 20240923
  Transmission Date: 20241017
  Serious: Yes (Death, Hospitalization)
  Sender: EISAI
  Company Number: US-Eisai-EC-2023-145984

PATIENT
  Age: 2 Month
  Sex: Female

DRUGS (6)
  1. PERAMPANEL [Suspect]
     Active Substance: PERAMPANEL
     Indication: Encephalopathy neonatal
     Route: 048
  2. OXCARBAZEPINE [Concomitant]
     Active Substance: OXCARBAZEPINE
     Indication: Encephalopathy neonatal
     Dosage: DOSE AND FREQUENCY UNKNOWN
     Route: 065
  3. OXCARBAZEPINE [Concomitant]
     Active Substance: OXCARBAZEPINE
     Dosage: DOSE INCREASED (DOSE AND FREQUENCY UNKNOWN)
     Route: 065
  4. BACLOFEN [Concomitant]
     Active Substance: BACLOFEN
     Indication: Encephalopathy neonatal
     Dosage: DOSE AND FREQUENCY UNKNOWN
     Route: 065
  5. PHENOBARBITAL [Concomitant]
     Active Substance: PHENOBARBITAL
     Indication: Encephalopathy neonatal
     Dosage: DOSE AND FREQUENCY UNKNOWN
     Route: 065
  6. DIAZEPAM [Concomitant]
     Active Substance: DIAZEPAM
     Indication: Encephalopathy neonatal
     Dosage: DOSE AND FREQUENCY UNKNOWN
     Route: 065

REACTIONS (1)
  - Respiratory failure [Fatal]
